FAERS Safety Report 14880405 (Version 1)
Quarter: 2018Q2

REPORT INFORMATION
  Report Type: Spontaneous
  Country: US (occurrence: US)
  Receive Date: 20180425
  Receipt Date: 20180425
  Transmission Date: 20180711
  Serious: Yes (Death, Life-Threatening, Hospitalization, Disabling, Other)
  Sender: FDA-Public Use
  Company Number: None

PATIENT
  Age: 60 Year
  Sex: Female
  Weight: 105.75 kg

DRUGS (5)
  1. OPDIVO [Suspect]
     Active Substance: NIVOLUMAB
     Route: 042
  2. LYRICA [Concomitant]
     Active Substance: PREGABALIN
  3. NORVASC [Concomitant]
     Active Substance: AMLODIPINE BESYLATE
  4. METHYLPHENIDATE. [Concomitant]
     Active Substance: METHYLPHENIDATE
  5. PROZAC [Concomitant]
     Active Substance: FLUOXETINE HYDROCHLORIDE

REACTIONS (4)
  - Pulmonary embolism [None]
  - Vocal cord paralysis [None]
  - Product quality issue [None]
  - Paralysis [None]

NARRATIVE: CASE EVENT DATE: 20180228
